FAERS Safety Report 19007966 (Version 6)
Quarter: 2021Q3

REPORT INFORMATION
  Report Type: Spontaneous
  Country: US (occurrence: US)
  Receive Date: 20210315
  Receipt Date: 20210715
  Transmission Date: 20211014
  Serious: Yes (Hospitalization, Other)
  Sender: FDA-Public Use
  Company Number: US-CELGENEUS-USA-20210301113

PATIENT
  Age: 47 Year
  Sex: Female
  Weight: 151.5 kg

DRUGS (1)
  1. ZEPOSIA [Suspect]
     Active Substance: OZANIMOD HYDROCHLORIDE
     Indication: MULTIPLE SCLEROSIS
     Dosage: .23 MILLIGRAM
     Route: 048
     Dates: start: 20210212

REACTIONS (4)
  - Weight increased [Unknown]
  - Pharyngitis streptococcal [Recovering/Resolving]
  - Hiatus hernia [Recovering/Resolving]
  - Crohn^s disease [Unknown]

NARRATIVE: CASE EVENT DATE: 20210212
